FAERS Safety Report 5831956-8 (Version None)
Quarter: 2008Q3

REPORT INFORMATION
  Report Type: 
  Country: None (occurrence: None)
  Receive Date: 20080804
  Receipt Date: 20080728
  Transmission Date: 20090109
  Serious: Yes (Other)
  Sender: FDA-Public Use
  Company Number: US-BAYER-200819975NA

PATIENT
  Age: 37 Year
  Sex: Female
  Weight: 59 kg

DRUGS (1)
  1. MIRENA [Suspect]
     Indication: CONTRACEPTION
     Route: 015
     Dates: start: 20071220, end: 20080207

REACTIONS (8)
  - COMPLICATION OF DEVICE INSERTION [None]
  - DISCOMFORT [None]
  - HAEMORRHAGE [None]
  - IUCD COMPLICATION [None]
  - PAIN [None]
  - PROCEDURAL HYPOTENSION [None]
  - UTERINE RUPTURE [None]
  - UTERINE SPASM [None]
